FAERS Safety Report 4634584-5 (Version None)
Quarter: 2005Q2

REPORT INFORMATION
  Report Type: 
  Country: None (occurrence: None)
  Receive Date: 20050411
  Receipt Date: 20050324
  Transmission Date: 20051028
  Serious: Yes (Hospitalization)
  Sender: FDA-Public Use
  Company Number: 8008654

PATIENT
  Age: 27 Year
  Sex: Female
  Weight: 49 kg

DRUGS (4)
  1. KEPPRA [Suspect]
     Indication: EPILEPSY
     Dosage: 1000 MG /D PO
     Route: 048
     Dates: start: 20031201
  2. KEPPRA [Suspect]
     Indication: EPILEPSY
     Dosage: 2500 MG /D PO
     Route: 048
  3. CARBAMAZEPINE [Concomitant]
  4. GABAPENTIN [Concomitant]

REACTIONS (2)
  - EXCITABILITY [None]
  - MUSCLE CONTRACTIONS INVOLUNTARY [None]
